FAERS Safety Report 8189251-0 (Version None)
Quarter: 2012Q1

REPORT INFORMATION
  Report Type: 
  Country: None (occurrence: None)
  Receive Date: 20120307
  Receipt Date: 20120224
  Transmission Date: 20120608
  Serious: Yes (Hospitalization, Other)
  Sender: FDA-Public Use
  Company Number: CO-ELI_LILLY_AND_COMPANY-CO201112000886

PATIENT
  Age: 68 Year
  Sex: Female

DRUGS (13)
  1. ASPIRIN [Concomitant]
  2. VYTORIN [Concomitant]
  3. FORTEO [Suspect]
     Indication: OSTEOPOROSIS
     Dosage: 20 UG, QD
     Route: 058
     Dates: start: 20110701, end: 20111028
  4. FORTEO [Suspect]
     Dosage: 20 UG, QD
     Route: 058
  5. BIOCALCIUM D3 [Concomitant]
     Indication: SUPPLEMENTATION THERAPY
  6. METHOTREXATE [Concomitant]
  7. SULFASALAZINE [Concomitant]
     Dosage: 500 MG, UNK
  8. OMEPRAZOLE [Concomitant]
  9. JANUVIA [Concomitant]
     Indication: DRUG THERAPY
  10. ENALAPRIL MALEATE [Concomitant]
  11. PREDNISOLONE [Concomitant]
  12. METOPROLOL TARTRATE [Concomitant]
  13. PAROXETINE HCL [Concomitant]

REACTIONS (3)
  - BLOOD POTASSIUM DECREASED [None]
  - MYOCARDIAL INFARCTION [None]
  - BLOOD SODIUM DECREASED [None]
